FAERS Safety Report 21039029 (Version 1)
Quarter: 2022Q3

REPORT INFORMATION
  Report Type: Report from Study
  Country: US (occurrence: US)
  Receive Date: 20220704
  Receipt Date: 20220704
  Transmission Date: 20221027
  Serious: Yes (Other)
  Sender: FDA-Public Use
  Company Number: US-Merck KGaA-7217163

PATIENT
  Age: 69 Year
  Sex: Male

DRUGS (1)
  1. REBIF [Suspect]
     Active Substance: INTERFERON BETA-1A
     Indication: Multiple sclerosis
     Route: 058
     Dates: start: 20100607

REACTIONS (7)
  - Type 2 diabetes mellitus [Recovering/Resolving]
  - Mood swings [Recovering/Resolving]
  - Fatigue [Not Recovered/Not Resolved]
  - Hypertension [Unknown]
  - Hyperglycaemia [Recovered/Resolved]
  - Multiple sclerosis relapse [Recovering/Resolving]
  - Diarrhoea [Unknown]

NARRATIVE: CASE EVENT DATE: 20100101
